FAERS Safety Report 5636892-8 (Version None)
Quarter: 2008Q1

REPORT INFORMATION
  Report Type: 
  Country: None (occurrence: None)
  Receive Date: 20080221
  Receipt Date: 20080211
  Transmission Date: 20080703
  Serious: Yes (Other)
  Sender: FDA-Public Use
  Company Number: 2008S1000031

PATIENT
  Age: 68 Year
  Sex: Female
  Weight: 67.1324 kg

DRUGS (1)
  1. OLUX [Suspect]
     Indication: PSORIASIS
     Dosage: 0.05 PCT; QD; TOP
     Route: 061

REACTIONS (4)
  - EYE IRRITATION [None]
  - EYE OEDEMA [None]
  - OCULAR HYPERAEMIA [None]
  - OPEN ANGLE GLAUCOMA [None]
